FAERS Safety Report 6371649-4 (Version None)
Quarter: 2009Q3

REPORT INFORMATION
  Report Type: 
  Country: None (occurrence: None)
  Receive Date: 20090923
  Receipt Date: 20080516
  Transmission Date: 20100115
  Serious: Yes (Other)
  Sender: FDA-Public Use
  Company Number: US-ASTRAZENECA-2008UW04288

PATIENT
  Age: 45 Year
  Sex: Female
  Weight: 110.9 kg

DRUGS (9)
  1. SEROQUEL [Suspect]
     Indication: DEPRESSION
     Route: 048
     Dates: start: 20000218
  2. SEROQUEL [Suspect]
     Indication: ANXIETY
     Route: 048
     Dates: start: 20000218
  3. SEROQUEL [Suspect]
     Route: 048
     Dates: start: 20030317
  4. SEROQUEL [Suspect]
     Route: 048
     Dates: start: 20030317
  5. ALBUTEROL [Concomitant]
     Dosage: FOUR TIMES A DAY
     Dates: start: 20071029
  6. BUSPAR [Concomitant]
     Dates: start: 20070613
  7. GEODON [Concomitant]
     Dates: start: 20071029
  8. KLOR-CON [Concomitant]
     Dates: start: 20071029
  9. WELLBUTRIN [Concomitant]
     Dates: start: 20071029

REACTIONS (2)
  - DIABETES MELLITUS [None]
  - TYPE 2 DIABETES MELLITUS [None]
